FAERS Safety Report 9552507 (Version 1)
Quarter: 2013Q3

REPORT INFORMATION
  Report Type: Spontaneous
  Country: US (occurrence: None)
  Receive Date: 20130724
  Receipt Date: 20130724
  Transmission Date: 20140515
  Serious: Yes (Hospitalization, Other)
  Sender: FDA-Public Use
  Company Number: PHEH2012US014985

PATIENT
  Age: 46 Year
  Sex: Male
  Weight: 88 kg

DRUGS (2)
  1. GLEEVEC (IMATINIB) [Suspect]
     Indication: GASTRIC CANCER
     Route: 048
     Dates: start: 20120214
  2. SUTENT (SUNITINIB MALATE) [Suspect]

REACTIONS (5)
  - Superinfection [None]
  - Neoplasm progression [None]
  - Abdominal pain [None]
  - Drug ineffective [None]
  - Malignant neoplasm progression [None]
